FAERS Safety Report 21315350 (Version 1)
Quarter: 2022Q3

REPORT INFORMATION
  Report Type: Spontaneous
  Country: US (occurrence: None)
  Receive Date: 20220909
  Receipt Date: 20220909
  Transmission Date: 20221027
  Serious: No
  Sender: FDA-Public Use
  Company Number: US-ARIS GLOBAL-202111-2177

PATIENT
  Sex: Female

DRUGS (7)
  1. OXERVATE [Suspect]
     Active Substance: CENEGERMIN-BKBJ
     Indication: Neurotrophic keratopathy
     Route: 047
     Dates: start: 20211119
  2. COLLAGEN [Concomitant]
     Active Substance: COLLAGEN
     Dosage: 125-740 MG
  3. MULTIVITAMIN 50 PLUS [Concomitant]
  4. FISH OIL [Concomitant]
     Active Substance: FISH OIL
     Dosage: 100-150 MG
  5. VITAMIN D-400 [Concomitant]
  6. CEQUA [Concomitant]
     Active Substance: CYCLOSPORINE
  7. ARTIFICIAL TEARS [Concomitant]
     Active Substance: GLYCERIN\HYPROMELLOSES\POLYETHYLENE GLYCOL 400

REACTIONS (1)
  - Nasal dryness [Unknown]
